FAERS Safety Report 8295722-9 (Version None)
Quarter: 2012Q2

REPORT INFORMATION
  Report Type: 
  Country: None (occurrence: None)
  Receive Date: 20120418
  Receipt Date: 20120416
  Transmission Date: 20120825
  Serious: Yes (Death)
  Sender: FDA-Public Use
  Company Number: CHPA2012DE008700

PATIENT
  Age: 48 Year
  Sex: Female
  Weight: 38 kg

DRUGS (2)
  1. CETIRIZINE [Suspect]
     Indication: SKIN DISORDER
     Dosage: 10MG IN THE MORNING
     Route: 048
  2. FENISTIL [Suspect]
     Indication: SKIN DISORDER
     Dosage: 1 MG IN THE EVENING
     Route: 048

REACTIONS (3)
  - CACHEXIA [None]
  - DEATH [None]
  - ALCOHOL POISONING [None]
